FAERS Safety Report 13738773 (Version 1)
Quarter: 2017Q3

REPORT INFORMATION
  Report Type: Spontaneous
  Country: US (occurrence: US)
  Receive Date: 20170710
  Receipt Date: 20170710
  Transmission Date: 20171127
  Serious: Yes (Other)
  Sender: FDA-Public Use
  Company Number: US-SAOL THERAPEUTICS-0701086387

PATIENT
  Age: 46 Year
  Sex: Male

DRUGS (1)
  1. LIORESAL [Suspect]
     Active Substance: BACLOFEN
     Dosage: 1376.8 ?G, \DAY

REACTIONS (4)
  - Therapeutic response decreased [None]
  - Device failure [Unknown]
  - Muscle spasticity [Unknown]
  - Pain [Unknown]

NARRATIVE: CASE EVENT DATE: 20150819
